FAERS Safety Report 6443245-1 (Version None)
Quarter: 2009Q4

REPORT INFORMATION
  Report Type: 
  Country: None (occurrence: None)
  Receive Date: 20091117
  Receipt Date: 20091106
  Transmission Date: 20100525
  Serious: Yes (Other)
  Sender: FDA-Public Use
  Company Number: US-BAYER-200916520BCC

PATIENT
  Age: 80 Year
  Sex: Female
  Weight: 56 kg

DRUGS (3)
  1. BAYER EXTRA STRENGTH ASPIRIN BACK + BODY [Suspect]
     Indication: OSTEOPOROSIS
     Dosage: UNIT DOSE: 500 MG
     Route: 048
  2. UNKNOWN DIABETES MEDICATIONS [Concomitant]
     Route: 065
  3. HIGH BLOOD PRESSURE MEDICATION [Concomitant]
     Route: 065

REACTIONS (3)
  - GASTRIC ULCER [None]
  - HAEMATEMESIS [None]
  - HAEMATOCHEZIA [None]
